FAERS Safety Report 4860232-5 (Version None)
Quarter: 2005Q4

REPORT INFORMATION
  Report Type: 
  Country: None (occurrence: None)
  Receive Date: 20051128
  Receipt Date: 20051014
  Transmission Date: 20060501
  Serious: No
  Sender: FDA-Public Use
  Company Number: 218653

PATIENT
  Sex: Female

DRUGS (1)
  1. RAPTIVA [Suspect]
     Route: 065
     Dates: start: 20051007

REACTIONS (2)
  - HEADACHE [None]
  - OCULAR HYPERAEMIA [None]
